FAERS Safety Report 18705414 (Version 1)
Quarter: 2021Q1

REPORT INFORMATION
  Report Type: Spontaneous
  Country: CN (occurrence: CN)
  Receive Date: 20210106
  Receipt Date: 20210106
  Transmission Date: 20210419
  Serious: Yes (Other)
  Sender: FDA-Public Use
  Company Number: CN-ROCHE-2743249

PATIENT
  Age: 75 Year
  Sex: Female

DRUGS (3)
  1. AVASTIN [Suspect]
     Active Substance: BEVACIZUMAB
     Indication: COLON CANCER METASTATIC
     Route: 041
     Dates: start: 20200519
  2. IRINOTECAN HYDROCHLORIDE. [Suspect]
     Active Substance: IRINOTECAN HYDROCHLORIDE
     Indication: COLON CANCER METASTATIC
     Route: 041
     Dates: start: 20200519
  3. RALTITREXED [Suspect]
     Active Substance: RALTITREXED
     Indication: COLON CANCER METASTATIC
     Route: 041
     Dates: start: 20200519

REACTIONS (4)
  - Diarrhoea [Recovering/Resolving]
  - Asthenia [Unknown]
  - Pyrexia [Unknown]
  - Myelosuppression [Recovering/Resolving]

NARRATIVE: CASE EVENT DATE: 20200529
